FAERS Safety Report 15669334 (Version 1)
Quarter: 2018Q4

REPORT INFORMATION
  Report Type: Spontaneous
  Country: US (occurrence: US)
  Receive Date: 20181129
  Receipt Date: 20181129
  Transmission Date: 20190205
  Serious: No
  Sender: FDA-Public Use
  Company Number: US-APOTEX-2018AP016377

PATIENT
  Sex: Female

DRUGS (1)
  1. FENTANYL TRANSDERMAL SYSTEM [Suspect]
     Active Substance: FENTANYL
     Indication: PRODUCT USED FOR UNKNOWN INDICATION
     Dosage: UNK
     Route: 065

REACTIONS (10)
  - Pain [Unknown]
  - Feeling abnormal [Unknown]
  - Product physical issue [Unknown]
  - Pruritus [Unknown]
  - Product quality issue [Unknown]
  - Burning sensation [Unknown]
  - Hypoaesthesia oral [Unknown]
  - Overdose [Unknown]
  - Nausea [Unknown]
  - Dizziness [Unknown]
